FAERS Safety Report 9758684 (Version 3)
Quarter: 2015Q2

REPORT INFORMATION
  Report Type: Spontaneous
  Country: US (occurrence: None)
  Receive Date: 20131216
  Receipt Date: 20150515
  Transmission Date: 20150821
  Serious: Yes (Hospitalization)
  Sender: FDA-Public Use
  Company Number: 057524

PATIENT
  Age: 50 Year
  Sex: Female

DRUGS (1)
  1. CIMZIA [Suspect]
     Active Substance: CERTOLIZUMAB PEGOL
     Indication: CROHN^S DISEASE
     Dates: start: 20110113

REACTIONS (3)
  - Inappropriate schedule of drug administration [None]
  - Intestinal obstruction [None]
  - Herpes zoster [None]

NARRATIVE: CASE EVENT DATE: 20110113
